FAERS Safety Report 9775703 (Version 2)
Quarter: 2014Q1

REPORT INFORMATION
  Report Type: Report from Study
  Country: DE (occurrence: DE)
  Receive Date: 20131220
  Receipt Date: 20140124
  Transmission Date: 20141002
  Serious: Yes (Hospitalization)
  Sender: FDA-Public Use
  Company Number: DE-MERCK-1312DEU007381

PATIENT
  Age: 65 Year
  Sex: Male
  Weight: 57 kg

DRUGS (1)
  1. TEMOZOLOMIDE [Suspect]
     Indication: GLIOBLASTOMA MULTIFORME
     Dosage: UNK
     Route: 048
     Dates: start: 20130725

REACTIONS (1)
  - Clonic convulsion [Unknown]
